FAERS Safety Report 6174262-7 (Version None)
Quarter: 2009Q2

REPORT INFORMATION
  Report Type: 
  Country: None (occurrence: None)
  Receive Date: 20090430
  Receipt Date: 20080423
  Transmission Date: 20091009
  Serious: No
  Sender: FDA-Public Use
  Company Number: US-ASTRAZENECA-2008UW08369

PATIENT
  Sex: Female

DRUGS (1)
  1. NEXIUM [Suspect]
     Route: 048

REACTIONS (5)
  - CLAUSTROPHOBIA [None]
  - FLUSHING [None]
  - MEDICATION ERROR [None]
  - PALPITATIONS [None]
  - TREMOR [None]
